FAERS Safety Report 20618310 (Version 3)
Quarter: 2022Q2

REPORT INFORMATION
  Report Type: Report from Study
  Country: JP (occurrence: JP)
  Receive Date: 20220321
  Receipt Date: 20220509
  Transmission Date: 20220721
  Serious: Yes (Hospitalization, Other)
  Sender: FDA-Public Use
  Company Number: JP-BRISTOL-MYERS SQUIBB COMPANY-BMS-2022-040405

PATIENT
  Age: 52 Year
  Sex: Male
  Weight: 62 kg

DRUGS (16)
  1. NIVOLUMAB [Suspect]
     Active Substance: NIVOLUMAB
     Indication: Colon cancer
     Route: 041
     Dates: start: 20211105, end: 20220228
  2. BMS-986310 [Suspect]
     Active Substance: BMS-986310
     Indication: Colon cancer
     Route: 048
     Dates: start: 20211105, end: 20220312
  3. FEBUXOSTAT [Concomitant]
     Active Substance: FEBUXOSTAT
     Indication: Hyperuricaemia
     Dosage: 10 MG, EVERYDAY
     Route: 048
     Dates: start: 20210121
  4. FERROUS SULFATE [Concomitant]
     Active Substance: FERROUS SULFATE
     Indication: Anaemia prophylaxis
     Dosage: 105 MG, EVERYDAY
     Route: 048
     Dates: start: 2020, end: 20220311
  5. FERROUS SULFATE [Concomitant]
     Active Substance: FERROUS SULFATE
     Dosage: 105 MG, EVERYDAY
     Route: 048
     Dates: start: 20220406
  6. CARBAZOCHROME SULFONATE NA [Concomitant]
     Indication: Haemorrhage prophylaxis
     Dosage: 30 MG, Q8H
     Route: 048
     Dates: start: 2020, end: 20220311
  7. HYALURONATE SODIUM [Concomitant]
     Active Substance: HYALURONATE SODIUM
     Indication: Prophylaxis
     Dosage: UNK, PRN
     Route: 047
     Dates: start: 20201121
  8. HERBALS [Concomitant]
     Active Substance: HERBALS
     Indication: Constipation prophylaxis
     Dosage: 1 DF, PRN
     Route: 048
     Dates: start: 20211026, end: 20220311
  9. HERBALS [Concomitant]
     Active Substance: HERBALS
     Route: 048
     Dates: start: 202110
  10. DIETARY SUPPLEMENT\PROBIOTICS [Concomitant]
     Active Substance: DIETARY SUPPLEMENT\PROBIOTICS
     Indication: Prophylaxis against diarrhoea
     Dosage: 1 DF, PRN
     Route: 048
     Dates: start: 20210108, end: 20220311
  11. BETAMETHASONE DIPROPIONATE [Concomitant]
     Active Substance: BETAMETHASONE DIPROPIONATE
     Indication: Pruritus
     Dosage: UNK, PRN
     Route: 061
     Dates: start: 20211117
  12. UNSPECIFIED INGREDIENT [Concomitant]
     Active Substance: UNSPECIFIED INGREDIENT
     Indication: Pruritus
     Dosage: UNK, PRN
     Route: 061
     Dates: start: 20211117
  13. UNSPECIFIED INGREDIENT [Concomitant]
     Active Substance: UNSPECIFIED INGREDIENT
     Indication: Pruritus
     Dosage: UNK, PRN
     Route: 061
     Dates: start: 20211117
  14. BILASTINE [Concomitant]
     Active Substance: BILASTINE
     Indication: Pruritus
     Dosage: 20 MG, EVERYDAY
     Route: 048
     Dates: start: 20220228, end: 20220311
  15. DIPHENHYDRAMINE [Concomitant]
     Active Substance: DIPHENHYDRAMINE
     Indication: Pruritus
     Dosage: UNK, PRN
     Route: 061
     Dates: start: 20211206
  16. NEXIUM [Concomitant]
     Active Substance: ESOMEPRAZOLE MAGNESIUM
     Indication: Gastritis prophylaxis
     Dosage: 10 MG, EVERYDAY
     Route: 048
     Dates: start: 20211111

REACTIONS (1)
  - Pericarditis [Recovered/Resolved]

NARRATIVE: CASE EVENT DATE: 20220312
